FAERS Safety Report 9183896 (Version 1)
Quarter: 2013Q1

REPORT INFORMATION
  Report Type: Spontaneous
  Country: US (occurrence: US)
  Receive Date: 20130322
  Receipt Date: 20130322
  Transmission Date: 20140127
  Serious: Yes (Other)
  Sender: FDA-Public Use
  Company Number: US-ELI_LILLY_AND_COMPANY-US201303005288

PATIENT
  Sex: Female

DRUGS (2)
  1. HUMULIN REGULAR [Suspect]
     Dosage: UNK, UNKNOWN
  2. HUMULIN REGULAR [Suspect]
     Dosage: 200 U, SINGLE
     Dates: start: 20130306, end: 20130306

REACTIONS (3)
  - Eye haemorrhage [Unknown]
  - Vomiting [Unknown]
  - Blood glucose decreased [Recovered/Resolved]
